FAERS Safety Report 11713121 (Version 1)
Quarter: 2015Q4

REPORT INFORMATION
  Report Type: Other
  Country: CA (occurrence: CA)
  Receive Date: 20151109
  Receipt Date: 20151109
  Transmission Date: 20160304
  Serious: Yes (Hospitalization, Other)
  Sender: FDA-Public Use
  Company Number: CA-JUBILANT GENERICS LIMITED-1043899

PATIENT
  Age: 24 Year
  Sex: Female

DRUGS (8)
  1. CANNABIS [Concomitant]
     Active Substance: CANNABIS SATIVA SUBSP. INDICA TOP
  2. CYMBALTA [Concomitant]
     Active Substance: DULOXETINE HYDROCHLORIDE
  3. CLONAZEPAM. [Concomitant]
     Active Substance: CLONAZEPAM
  4. NICOTINE. [Concomitant]
     Active Substance: NICOTINE
  5. LITHIUM. [Concomitant]
     Active Substance: LITHIUM
  6. CAFFEINE. [Concomitant]
     Active Substance: CAFFEINE
  7. OLANZAPINE. [Concomitant]
     Active Substance: OLANZAPINE
  8. BUPROPION. [Suspect]
     Active Substance: BUPROPION

REACTIONS (5)
  - Necrosis [Recovering/Resolving]
  - Compartment syndrome [Recovering/Resolving]
  - Incorrect route of drug administration [Recovered/Resolved]
  - Drug dependence [Unknown]
  - Cellulitis [Recovering/Resolving]

NARRATIVE: CASE EVENT DATE: 20151026
